FAERS Safety Report 7541051-8 (Version None)
Quarter: 2011Q2

REPORT INFORMATION
  Report Type: 
  Country: None (occurrence: None)
  Receive Date: 20110610
  Receipt Date: 20110530
  Transmission Date: 20111010
  Serious: Yes (Death)
  Sender: FDA-Public Use
  Company Number: GB-MYLANLABS-2011S1011212

PATIENT
  Sex: Male

DRUGS (4)
  1. LAMOTRIGINE [Concomitant]
     Route: 065
  2. VALPROIC ACID [Concomitant]
     Route: 065
  3. TOPIRAMATE [Suspect]
     Indication: EPILEPSY
     Route: 065
  4. PHENYTOIN [Concomitant]
     Route: 065

REACTIONS (2)
  - RENAL FAILURE [None]
  - SEPSIS [None]
